FAERS Safety Report 4896431-6 (Version None)
Quarter: 2006Q1

REPORT INFORMATION
  Report Type: 
  Country: None (occurrence: None)
  Receive Date: 20060126
  Receipt Date: 20060113
  Transmission Date: 20060701
  Serious: Yes (Other)
  Sender: FDA-Public Use
  Company Number: 2006006704

PATIENT
  Age: 12 Year
  Sex: Female
  Weight: 26 kg

DRUGS (12)
  1. DIFLUCAN [Suspect]
     Indication: ILL-DEFINED DISORDER
     Dosage: 1-1.5 ML SINGEL ADMINISTRATION, INTRAVENOUS
     Route: 042
     Dates: start: 20051123, end: 20051123
  2. PRIMPERAN TAB [Concomitant]
  3. DUPHALAC [Concomitant]
  4. SOLMUCOL (ACETYLCYSTEINE) [Concomitant]
  5. OMEPRAZOLE [Concomitant]
  6. KONAKION [Concomitant]
  7. CETIRIZINE HCL [Concomitant]
  8. TEMESTA (LORAZEPAM) [Concomitant]
  9. ACETAMINOPHEN [Concomitant]
  10. ZOFRAN [Concomitant]
  11. PARAPLATIN [Concomitant]
  12. TOTAL PARENTERAL NUTRITION (TOTAOL PARENTERAL NUTRITION) [Concomitant]

REACTIONS (1)
  - INCORRECT ROUTE OF DRUG ADMINISTRATION [None]
